FAERS Safety Report 7777003-2 (Version None)
Quarter: 2011Q3

REPORT INFORMATION
  Report Type: 
  Country: None (occurrence: None)
  Receive Date: 20110926
  Receipt Date: 20110926
  Transmission Date: 20111222
  Serious: Yes (Other)
  Sender: FDA-Public Use
  Company Number: None

PATIENT
  Age: 83 Year
  Sex: Male
  Weight: 69.7 kg

DRUGS (1)
  1. LANSOPRAZOLE [Suspect]
     Dosage: 30 MG
     Route: 050
     Dates: start: 20110914, end: 20110923

REACTIONS (1)
  - MEDICAL DEVICE COMPLICATION [None]
